FAERS Safety Report 12233358 (Version 1)
Quarter: 2016Q2

REPORT INFORMATION
  Report Type: Spontaneous
  Country: US (occurrence: US)
  Receive Date: 20160404
  Receipt Date: 20160404
  Transmission Date: 20160815
  Serious: No
  Sender: FDA-Public Use
  Company Number: US-STRIDES ARCOLAB LIMITED-2016SP001130

PATIENT

DRUGS (6)
  1. IMIQUIMOD. [Suspect]
     Active Substance: IMIQUIMOD
     Indication: MYCOSIS FUNGOIDES
     Dosage: TWICE WEEKLY AND TITRATED TO THREE TIMES WEEKLY
     Route: 061
  2. CORTICOSTEROIDS [Concomitant]
     Active Substance: CORTICOSTEROID NOS
     Indication: MYCOSIS FUNGOIDES STAGE I
     Dosage: UNK
     Route: 061
  3. CARMUSTINE [Concomitant]
     Active Substance: CARMUSTINE
     Indication: MYCOSIS FUNGOIDES STAGE I
     Dosage: UNK
     Route: 061
  4. PSORALEN [Concomitant]
     Active Substance: PSORALEN
     Indication: MYCOSIS FUNGOIDES STAGE I
     Dosage: UNK
  5. METHOTREXATE [Concomitant]
     Active Substance: METHOTREXATE
     Indication: MYCOSIS FUNGOIDES STAGE I
     Dosage: UNK
  6. BEXAROTENE. [Concomitant]
     Active Substance: BEXAROTENE
     Indication: MYCOSIS FUNGOIDES STAGE I
     Dosage: UNK
     Route: 061

REACTIONS (2)
  - Off label use [Unknown]
  - Application site erythema [Unknown]
